FAERS Safety Report 8494487 (Version 2)
Quarter: 2016Q4

REPORT INFORMATION
  Report Type: Report from Study
  Country: BR (occurrence: BR)
  Receive Date: 20120404
  Receipt Date: 20161215
  Transmission Date: 20170207
  Serious: No
  Sender: FDA-Public Use
  Company Number: BR-ROCHE-1053065

PATIENT
  Age: 49 Year
  Sex: Female

DRUGS (2)
  1. PEG-INTERFERON ALFA 2A [Suspect]
     Active Substance: PEGINTERFERON ALFA-2A
     Indication: PRODUCT USED FOR UNKNOWN INDICATION
     Route: 065
     Dates: start: 20110411
  2. RIBAVIRIN. [Suspect]
     Active Substance: RIBAVIRIN
     Indication: PRODUCT USED FOR UNKNOWN INDICATION
     Route: 065
     Dates: start: 20110411

REACTIONS (13)
  - Tongue pigmentation [Not Recovered/Not Resolved]
  - Pneumonia [Recovered/Resolved]
  - Gastroenteritis [Recovered/Resolved]
  - Depression [Not Recovered/Not Resolved]
  - Dry mouth [Recovered/Resolved]
  - Insomnia [Recovered/Resolved]
  - Dry eye [Recovered/Resolved]
  - Dry skin [Recovered/Resolved]
  - Diarrhoea [Recovered/Resolved]
  - Dermatitis [Not Recovered/Not Resolved]
  - Epistaxis [Recovered/Resolved]
  - Alopecia [Recovered/Resolved]
  - Influenza like illness [Recovered/Resolved]

NARRATIVE: CASE EVENT DATE: 20110426
